FAERS Safety Report 7725943-2 (Version None)
Quarter: 2011Q3

REPORT INFORMATION
  Report Type: 
  Country: None (occurrence: None)
  Receive Date: 20110902
  Receipt Date: 20110824
  Transmission Date: 20111222
  Serious: Yes (Other)
  Sender: FDA-Public Use
  Company Number: RU-JNJFOC-20110812681

PATIENT
  Sex: Male

DRUGS (1)
  1. LEVOFLOXACIN [Suspect]
     Indication: PRODUCT USED FOR UNKNOWN INDICATION
     Route: 048
     Dates: start: 20110528

REACTIONS (4)
  - BLOOD PRESSURE DECREASED [None]
  - ASTHENIA [None]
  - HEART RATE INCREASED [None]
  - ANGINA PECTORIS [None]
